FAERS Safety Report 16854115 (Version 1)
Quarter: 2019Q4

REPORT INFORMATION
  Report Type: Spontaneous
  Country: US (occurrence: US)
  Receive Date: 20190926
  Receipt Date: 20190926
  Transmission Date: 20200122
  Serious: No
  Sender: FDA-Public Use
  Company Number: None

PATIENT
  Age: 51 Year
  Sex: Female
  Weight: 82.35 kg

DRUGS (2)
  1. METHYLPHENIDATE (OCCASIONAL) [Concomitant]
  2. MARCAINE [Suspect]
     Active Substance: BUPIVACAINE HYDROCHLORIDE
     Indication: NEURALGIA
     Dosage: ?          OTHER FREQUENCY:3 INJECTIONS PERFO;?
     Route: 058
     Dates: start: 20190918, end: 20190918

REACTIONS (1)
  - Pain [None]

NARRATIVE: CASE EVENT DATE: 20190918
